FAERS Safety Report 5729746-X (Version None)
Quarter: 2008Q2

REPORT INFORMATION
  Report Type: 
  Country: None (occurrence: None)
  Receive Date: 20080506
  Receipt Date: 20080501
  Transmission Date: 20081010
  Serious: Yes (Hospitalization, Disabling)
  Sender: FDA-Public Use
  Company Number: US-BOEHRINGER INGELHEIM GMBH, GERMANY-2008-BP-01591BP

PATIENT
  Sex: Female
  Weight: 67 kg

DRUGS (7)
  1. SPIRIVA [Suspect]
     Indication: CHRONIC OBSTRUCTIVE PULMONARY DISEASE
     Route: 055
     Dates: start: 20060101, end: 20080101
  2. SPIRIVA [Suspect]
     Indication: EMPHYSEMA
  3. SYSTANE [Concomitant]
     Indication: DRY EYE
  4. SPIRONOLACT/HCTZ [Concomitant]
  5. CALCIUM [Concomitant]
  6. MULTI-VITAMIN [Concomitant]
  7. PULMICORT [Concomitant]
     Route: 055
     Dates: start: 20051201

REACTIONS (3)
  - BLINDNESS UNILATERAL [None]
  - CHEST PAIN [None]
  - HEART RATE IRREGULAR [None]
